FAERS Safety Report 6931644-0 (Version None)
Quarter: 2010Q3

REPORT INFORMATION
  Report Type: 
  Country: None (occurrence: None)
  Receive Date: 20100812
  Receipt Date: 20090713
  Transmission Date: 20110219
  Serious: No
  Sender: FDA-Public Use
  Company Number: 2009-00377

PATIENT
  Age: 68 Year
  Sex: Female
  Weight: 70.3075 kg

DRUGS (13)
  1. ZICAM COLD REMEDY GEL SWABS [Suspect]
     Dosage: SPORADIC, 2-3 YEARS; NONSPECIFIC - RECENT
  2. ZICAM COLD REMEDY GEL SWABS [Suspect]
     Dosage: 2-4 YEARS; RECENT
  3. TYLENOL (CAPLET) [Concomitant]
  4. CALCIUM WITH VITAMIN D [Concomitant]
  5. L LYSINE [Concomitant]
  6. DICLOFENAC SODIUM [Concomitant]
  7. ACIDOPHILUS [Concomitant]
  8. BENADRYL [Concomitant]
  9. FISH OIL OMEGA 3 TOPROL XL [Concomitant]
  10. GINGER ROOT [Concomitant]
  11. TRACE MINERAL + [Concomitant]
  12. IBUPROFEN [Concomitant]
  13. VITAMIN E [Concomitant]

REACTIONS (1)
  - ANOSMIA [None]
